FAERS Safety Report 17087433 (Version 1)
Quarter: 2019Q4

REPORT INFORMATION
  Report Type: Spontaneous
  Country: US (occurrence: US)
  Receive Date: 20191128
  Receipt Date: 20191128
  Transmission Date: 20200122
  Serious: Yes (Death, Hospitalization, Other)
  Sender: FDA-Public Use
  Company Number: US-AMGEN-USASP2019197567

PATIENT
  Age: 88 Year
  Sex: Female
  Weight: 54.42 kg

DRUGS (4)
  1. PROCRIT [Suspect]
     Active Substance: ERYTHROPOIETIN
     Indication: ANAEMIA OF MALIGNANT DISEASE
     Dosage: LOWEST DOSE, AS NECESSARY
     Route: 065
     Dates: start: 201904, end: 2019
  2. PROCRIT [Suspect]
     Active Substance: ERYTHROPOIETIN
     Dosage: UNK UNK, Q2WK
     Route: 065
     Dates: start: 2019
  3. PROCRIT [Suspect]
     Active Substance: ERYTHROPOIETIN
     Dosage: UNK UNK, QWK
     Route: 065
     Dates: start: 2019, end: 2019
  4. TYLENOL [Suspect]
     Active Substance: ACETAMINOPHEN
     Indication: PRODUCT USED FOR UNKNOWN INDICATION
     Dosage: 600 MILLIGRAM, BID FOR A WEEK
     Route: 065
     Dates: start: 2019, end: 2019

REACTIONS (4)
  - Disseminated intravascular coagulation [Fatal]
  - Constipation [Unknown]
  - Asthenia [Unknown]
  - Unevaluable event [Unknown]

NARRATIVE: CASE EVENT DATE: 2019
